FAERS Safety Report 25646226 (Version 2)
Quarter: 2025Q3

REPORT INFORMATION
  Report Type: Spontaneous
  Country: AR (occurrence: AR)
  Receive Date: 20250805
  Receipt Date: 20250828
  Transmission Date: 20251021
  Serious: Yes (Death, Other)
  Sender: TAKEDA
  Company Number: AR-TAKEDA-2025TUS060575

PATIENT
  Sex: Male

DRUGS (3)
  1. LIVTENCITY [Suspect]
     Active Substance: MARIBAVIR
     Indication: Colitis
  2. LIVTENCITY [Suspect]
     Active Substance: MARIBAVIR
     Indication: Cytomegalovirus infection
  3. LIVTENCITY [Suspect]
     Active Substance: MARIBAVIR
     Indication: Acute kidney injury

REACTIONS (2)
  - Transplant failure [Fatal]
  - Off label use [Unknown]
